FAERS Safety Report 12121522 (Version 1)
Quarter: 2016Q1

REPORT INFORMATION
  Report Type: Spontaneous
  Country: US (occurrence: US)
  Receive Date: 20160226
  Receipt Date: 20160226
  Transmission Date: 20160526
  Serious: No
  Sender: FDA-Public Use
  Company Number: US-ALLERGAN-1302714US

PATIENT
  Age: 30 Year
  Sex: Female

DRUGS (1)
  1. REFRESH OPTIVE [Suspect]
     Active Substance: CARBOXYMETHYLCELLULOSE SODIUM\GLYCERIN
     Indication: EYE PAIN

REACTIONS (3)
  - Drug ineffective [Unknown]
  - Product use issue [Unknown]
  - Eyelid oedema [Not Recovered/Not Resolved]
